FAERS Safety Report 8267837-2 (Version None)
Quarter: 2012Q2

REPORT INFORMATION
  Report Type: 
  Country: None (occurrence: None)
  Receive Date: 20120404
  Receipt Date: 20120322
  Transmission Date: 20120825
  Serious: Yes (Hospitalization, Other)
  Sender: FDA-Public Use
  Company Number: DSJ-2012-05651

PATIENT
  Age: 69 Year
  Sex: Female

DRUGS (6)
  1. EZETIMIBE/SAMVASTATIN [Concomitant]
  2. BROMAZEPAM (BROMAZEPAM) (BROMAZEPAM) [Concomitant]
  3. LEVOTHYROXINE SODIUM [Concomitant]
  4. OMEPRAZOLE [Concomitant]
  5. PROPAFENONE (PROPAFENONE) (PROPAFENONE) [Concomitant]
  6. AMLODIPINE BESYLATE AND OLMESARTAN MEDOXOMIL [Suspect]
     Indication: HYPERTENSION
     Dosage: 40/10 MG (1 IN 1 D),PER ORAL
     Route: 048
     Dates: start: 20090101, end: 20120301

REACTIONS (8)
  - VOMITING [None]
  - HAEMORRHOIDS [None]
  - HYPOTENSION [None]
  - SKIN BURNING SENSATION [None]
  - NAUSEA [None]
  - INFECTION [None]
  - OEDEMA PERIPHERAL [None]
  - DIZZINESS [None]
